FAERS Safety Report 7902517-1 (Version None)
Quarter: 2011Q4

REPORT INFORMATION
  Report Type: 
  Country: None (occurrence: None)
  Receive Date: 20111108
  Receipt Date: 20111026
  Transmission Date: 20120403
  Serious: Yes (Life-Threatening, Hospitalization, Other)
  Sender: FDA-Public Use
  Company Number: US-ELI_LILLY_AND_COMPANY-US201106003093

PATIENT
  Sex: Female

DRUGS (8)
  1. CLARITIN [Concomitant]
  2. FORTEO [Suspect]
     Dosage: 20 UG, QD
     Route: 065
  3. COUMADIN [Concomitant]
  4. ANALGESICS [Concomitant]
     Indication: PAIN
  5. CITRACAL [Concomitant]
  6. FORTEO [Suspect]
     Indication: OSTEOPOROSIS
     Dosage: 20 UG, QD
     Route: 065
  7. NORCO [Concomitant]
  8. SEROQUEL [Concomitant]
     Dosage: UNK

REACTIONS (6)
  - FATIGUE [None]
  - MUSCLE SPASMS [None]
  - SPINAL OPERATION [None]
  - ARTHRITIS [None]
  - DIARRHOEA [None]
  - FAECES DISCOLOURED [None]
